FAERS Safety Report 23794442 (Version 1)
Quarter: 2024Q2

REPORT INFORMATION
  Report Type: Spontaneous
  Country: ES (occurrence: None)
  Receive Date: 20240429
  Receipt Date: 20240429
  Transmission Date: 20240716
  Serious: Yes (Hospitalization)
  Sender: FDA-Public Use
  Company Number: ES-ROCHE-3550504

PATIENT
  Age: 68 Year
  Sex: Male

DRUGS (9)
  1. OBINUTUZUMAB [Suspect]
     Active Substance: OBINUTUZUMAB
     Indication: Chronic lymphocytic leukaemia
     Dosage: LAST DOSE 15/MAR/2022
     Route: 042
     Dates: start: 20211111
  2. VENETOCLAX [Suspect]
     Active Substance: VENETOCLAX
     Indication: Chronic lymphocytic leukaemia
     Dosage: LAST DOSE 14/SEP/2022
     Route: 048
     Dates: start: 20211102
  3. POLARAMINE [Concomitant]
     Active Substance: DEXCHLORPHENIRAMINE MALEATE
  4. PAROXETINE [Concomitant]
     Active Substance: PAROXETINE
  5. ATORVASTATIN [Concomitant]
     Active Substance: ATORVASTATIN
  6. ENALAPRIL [Concomitant]
     Active Substance: ENALAPRIL
  7. ASPIRIN [Concomitant]
     Active Substance: ASPIRIN
  8. OMEPRAZOLE [Concomitant]
     Active Substance: OMEPRAZOLE
  9. TERBUTALINE SULFATE [Concomitant]
     Active Substance: TERBUTALINE SULFATE

REACTIONS (1)
  - Chronic lymphocytic leukaemia [Unknown]

NARRATIVE: CASE EVENT DATE: 20240129
